FAERS Safety Report 10103367 (Version 1)
Quarter: 2014Q2

REPORT INFORMATION
  Report Type: Spontaneous
  Country: US (occurrence: US)
  Receive Date: 20140424
  Receipt Date: 20140424
  Transmission Date: 20141212
  Serious: No
  Sender: FDA-Public Use
  Company Number: US-BRISTOL-MYERS SQUIBB COMPANY-20348876

PATIENT
  Age: 86 Year
  Sex: Male

DRUGS (10)
  1. ELIQUIS [Suspect]
     Dates: start: 20140225
  2. HYDROCHLOROTHIAZIDE [Concomitant]
     Dosage: 1DF: 12.5 UNITS NOS
  3. ASPIRIN [Concomitant]
  4. VITAMIN D3 [Concomitant]
  5. WARFARIN [Concomitant]
     Dosage: AT NIGHT
  6. CARDIZEM [Concomitant]
     Dosage: AT NIGHT
  7. ATORVASTATIN [Concomitant]
     Dosage: AT NIGHT
  8. LOSARTAN [Concomitant]
     Dosage: AT NIGHT
  9. TRAVATAN [Concomitant]
     Dosage: AT NIGHT
  10. BENICAR [Concomitant]
     Dosage: AT NIGHT

REACTIONS (1)
  - Dizziness [Recovered/Resolved]
